FAERS Safety Report 10016847 (Version 1)
Quarter: 2014Q1

REPORT INFORMATION
  Report Type: Report from Study
  Country: ES (occurrence: ES)
  Receive Date: 20140318
  Receipt Date: 20140318
  Transmission Date: 20141002
  Serious: Yes (Hospitalization)
  Sender: FDA-Public Use
  Company Number: ES-ROCHE-1365088

PATIENT
  Age: 69 Year
  Sex: Male
  Weight: 90 kg

DRUGS (10)
  1. BEVACIZUMAB [Suspect]
     Indication: COLORECTAL CANCER METASTATIC
     Dosage: MOST RECENT DOSE PRIOR TO SAE : 14/FEB/2014
     Route: 042
     Dates: start: 20131108
  2. IRINOTECAN [Suspect]
     Indication: COLORECTAL CANCER METASTATIC
     Dosage: MOST RECENT DOSE PRIOR TO SAE : 14/FEB/2014
     Route: 065
     Dates: start: 20131108
  3. FOLINIC ACID [Suspect]
     Indication: COLORECTAL CANCER METASTATIC
     Dosage: MOST RECENT DOSE PRIOR TO SAE : 14/FEB/2014
     Route: 042
     Dates: start: 20131108
  4. FLUOROURACIL [Suspect]
     Indication: COLORECTAL CANCER METASTATIC
     Dosage: MOST RECENT DOSE PRIOR TO SAE : 14/FEB/2014
     Route: 040
     Dates: start: 20131108
  5. FLUOROURACIL [Suspect]
     Dosage: MOST RECENT DOSE PRIOR TO SAE : 14/FEB/2014
     Route: 042
     Dates: start: 20131108
  6. ADIRO [Concomitant]
     Route: 048
  7. OMACOR [Concomitant]
     Route: 048
  8. ALLOPURINOL [Concomitant]
     Route: 048
  9. ATENOLOL [Concomitant]
     Route: 048
  10. ATORVASTATIN [Concomitant]
     Route: 048

REACTIONS (1)
  - Thrombosis in device [Recovered/Resolved]
